FAERS Safety Report 17740758 (Version 1)
Quarter: 2020Q2

REPORT INFORMATION
  Report Type: Other
  Country: GB (occurrence: GB)
  Receive Date: 20200504
  Receipt Date: 20200504
  Transmission Date: 20200714
  Serious: Yes (Other)
  Sender: FDA-Public Use
  Company Number: GB-STRIDES ARCOLAB LIMITED-2020SP005358

PATIENT
  Age: 77 Year
  Sex: Male

DRUGS (10)
  1. MITOMYCIN. [Suspect]
     Active Substance: MITOMYCIN
     Indication: IMPLANT SITE SCAR
     Dosage: 0.1 MILLILITER, UNKNOWN (0.01 PERCENT IN 0.1 ML, WAS INJECTED FOLLOWING ADEQUATE ANAESTHESIA)
     Route: 057
  2. HYALURONIDASE [Suspect]
     Active Substance: HYALURONIDASE
     Indication: LOCAL ANAESTHESIA
     Dosage: UNK
     Route: 065
  3. HEALON GV [Suspect]
     Active Substance: HYALURONATE SODIUM
     Indication: PRODUCT USED FOR UNKNOWN INDICATION
     Dosage: UNK
     Route: 031
  4. PREDNISOLONE. [Suspect]
     Active Substance: PREDNISOLONE
     Indication: PRODUCT USED FOR UNKNOWN INDICATION
     Dosage: 1 PERCENT, QID (DROP, 4 UNK, PER DAY) (1 PERCENTILE FOUR TIMES/DAY, POST-OPERATIVELY FOR 4 WEEKS)
     Route: 065
  5. DEXAMETHASONE. [Suspect]
     Active Substance: DEXAMETHASONE
     Indication: PRODUCT USED FOR UNKNOWN INDICATION
     Dosage: 1 MILLILITER, UNKNOWN, 1 ML (3.3. MG IN 1 ML)
     Route: 057
  6. CHLORAMPHENICOL [Suspect]
     Active Substance: CHLORAMPHENICOL
     Indication: PRODUCT USED FOR UNKNOWN INDICATION
     Dosage: 0.5 PERCENT, QID (0.5 PERCENT FOUR TIMES/DAY POST-OPERATIVELY FOR 4 WEEKS) (4 UNK, PER DAY)
     Route: 065
  7. MIOCHOL E [Suspect]
     Active Substance: ACETYLCHOLINE CHLORIDE
     Indication: PUPIL CONSTRICTION PROCEDURE
     Dosage: UNK
     Route: 065
  8. LIDOCAINE. [Suspect]
     Active Substance: LIDOCAINE
     Indication: LOCAL ANAESTHESIA
     Dosage: UNK (3-5 MLS)
     Route: 065
  9. MITOMYCIN. [Suspect]
     Active Substance: MITOMYCIN
     Indication: PROPHYLAXIS
     Dosage: UNK
     Route: 065
  10. CEFUROXIME. [Suspect]
     Active Substance: CEFUROXIME
     Indication: PRODUCT USED FOR UNKNOWN INDICATION
     Dosage: 0.1 MILLILITER, UNKNOWN (0.1 ML (3 MG IN 0.3 MLS))
     Route: 031

REACTIONS (6)
  - Hyphaema [Unknown]
  - Scar [Unknown]
  - Vascular stent stenosis [Unknown]
  - Conjunctival haemorrhage [Unknown]
  - Device breakage [Unknown]
  - Conjunctival bleb [Unknown]
